FAERS Safety Report 7766081-2 (Version None)
Quarter: 2011Q3

REPORT INFORMATION
  Report Type: 
  Country: None (occurrence: None)
  Receive Date: 20110921
  Receipt Date: 20110909
  Transmission Date: 20111222
  Serious: Yes (Hospitalization, Disabling, Other)
  Sender: FDA-Public Use
  Company Number: PHEH2007US03377

PATIENT
  Sex: Male
  Weight: 99.773 kg

DRUGS (29)
  1. FELODIPINE [Concomitant]
  2. ANTIVERT ^PFIZER^ [Concomitant]
  3. AREDIA [Suspect]
     Dosage: 30MG
     Route: 042
  4. CARDIZEM [Concomitant]
  5. COMPAZINE [Concomitant]
  6. SPIRIVA [Concomitant]
     Indication: CHRONIC OBSTRUCTIVE PULMONARY DISEASE
  7. AGGRENOX [Concomitant]
     Indication: CEREBROVASCULAR ACCIDENT
     Dosage: UNK
  8. ASPIRIN [Concomitant]
     Dosage: 81 MG, QD
  9. GLYNASE [Concomitant]
     Indication: TYPE 2 DIABETES MELLITUS
  10. CREON [Concomitant]
  11. BACTRIM [Concomitant]
  12. TAXOL [Concomitant]
  13. NEUPOGEN [Concomitant]
  14. LISINOPRIL [Concomitant]
     Indication: HYPERTENSION
     Dosage: 5 MG, QD
  15. CALCIUM CARBONATE [Concomitant]
  16. ELAVIL [Concomitant]
     Dosage: 15 MG, QHS
  17. ZYRTEC [Concomitant]
  18. BCG VACCINE ^PASTEUR^ [Concomitant]
     Indication: BLADDER CANCER
  19. VITAMIN D [Concomitant]
  20. GEMZAR [Concomitant]
  21. NORVASC [Concomitant]
  22. PRILOSEC [Concomitant]
  23. GLYBURIDE [Concomitant]
     Indication: TYPE 2 DIABETES MELLITUS
  24. LOVASTATIN [Concomitant]
  25. LORTAB [Concomitant]
  26. MAGNESIUM CITRATE [Concomitant]
  27. DOXYCYCLINE [Concomitant]
  28. PAMELOR [Concomitant]
  29. PRAVACHOL [Concomitant]
     Dosage: 40 MG, QD
     Route: 048

REACTIONS (64)
  - CEREBRAL ATROPHY [None]
  - OSTEONECROSIS OF JAW [None]
  - BONE LOSS [None]
  - LOOSE TOOTH [None]
  - LUNG HYPERINFLATION [None]
  - URINARY TRACT INFECTION [None]
  - SPINAL COMPRESSION FRACTURE [None]
  - ORTHOSTATIC HYPOTENSION [None]
  - FACIAL BONES FRACTURE [None]
  - BLADDER SPASM [None]
  - RIB FRACTURE [None]
  - GAIT DISTURBANCE [None]
  - PHLEBOSCLEROSIS [None]
  - VITREOUS DETACHMENT [None]
  - URINARY INCONTINENCE [None]
  - LABYRINTHITIS [None]
  - DIZZINESS [None]
  - DYSPNOEA EXERTIONAL [None]
  - RENAL CYST [None]
  - LIVER FUNCTION TEST ABNORMAL [None]
  - NEUTROPHIL COUNT INCREASED [None]
  - ARTERIOSCLEROSIS [None]
  - AGEUSIA [None]
  - VISUAL IMPAIRMENT [None]
  - TESTICULAR SWELLING [None]
  - DENTAL CARIES [None]
  - GENERAL PHYSICAL HEALTH DETERIORATION [None]
  - PAIN [None]
  - DECREASED INTEREST [None]
  - TYPE 2 DIABETES MELLITUS [None]
  - SINUS TACHYCARDIA [None]
  - ATRIOVENTRICULAR BLOCK FIRST DEGREE [None]
  - PARKINSON'S DISEASE [None]
  - LACERATION [None]
  - NEUROPATHY PERIPHERAL [None]
  - FAECAL INCONTINENCE [None]
  - ANOSMIA [None]
  - PANCREATITIS [None]
  - HAEMATURIA [None]
  - VERTIGO [None]
  - PRESYNCOPE [None]
  - NAUSEA [None]
  - CEREBRAL INFARCTION [None]
  - NOCTURIA [None]
  - CONTUSION [None]
  - ASTHENIA [None]
  - PULMONARY FIBROSIS [None]
  - NASAL SEPTUM DISORDER [None]
  - TONSILLAR DISORDER [None]
  - TESTICULAR PAIN [None]
  - ATAXIA [None]
  - PYREXIA [None]
  - INTERVERTEBRAL DISC DEGENERATION [None]
  - FALL [None]
  - LYMPHOCYTE COUNT DECREASED [None]
  - ATRIAL FLUTTER [None]
  - CATARACT [None]
  - EPIDIDYMITIS [None]
  - ANXIETY [None]
  - CONFUSIONAL STATE [None]
  - ATELECTASIS [None]
  - VOMITING [None]
  - SNORING [None]
  - RHINITIS [None]
